FAERS Safety Report 18611700 (Version 2)
Quarter: 2021Q1

REPORT INFORMATION
  Report Type: Spontaneous
  Country: FR (occurrence: FR)
  Receive Date: 20201214
  Receipt Date: 20210301
  Transmission Date: 20210419
  Serious: Yes (Other)
  Sender: FDA-Public Use
  Company Number: FR-SA-2020SA352644

PATIENT
  Age: 84 Year
  Sex: Female

DRUGS (2)
  1. PLAVIX [Suspect]
     Active Substance: CLOPIDOGREL BISULFATE
     Dosage: UNK IN THE EVENING INSTEAD OF IN THE MORNING
  2. PANTOPRAZOLE [Suspect]
     Active Substance: PANTOPRAZOLE

REACTIONS (4)
  - Drug intolerance [Unknown]
  - Fall [Unknown]
  - Loss of consciousness [Unknown]
  - Abdominal discomfort [Unknown]
